FAERS Safety Report 8289707-6 (Version None)
Quarter: 2012Q2

REPORT INFORMATION
  Report Type: 
  Country: None (occurrence: None)
  Receive Date: 20120417
  Receipt Date: 20120406
  Transmission Date: 20120825
  Serious: Yes (Hospitalization)
  Sender: FDA-Public Use
  Company Number: JP-SANOFI-AVENTIS-2012SA021828

PATIENT
  Age: 90 Year
  Sex: Female
  Weight: 44.8 kg

DRUGS (9)
  1. TRITEREN [Concomitant]
     Indication: CARDIAC FAILURE
     Dates: start: 20111227
  2. ETIZOLAM [Concomitant]
     Indication: INSOMNIA
     Dates: start: 20010327
  3. CELECOXIB [Suspect]
     Indication: OSTEOARTHRITIS
     Dosage: STRENGTH: 100 MG
     Route: 048
     Dates: start: 20120207, end: 20120210
  4. PRAVASTATIN SODIUM [Concomitant]
     Dates: start: 19920707
  5. ZOLPIDEM [Suspect]
     Indication: INSOMNIA
     Route: 048
     Dates: start: 20091029
  6. MUCODYNE [Concomitant]
     Indication: BRONCHITIS CHRONIC
     Dates: start: 19920707
  7. PRAVASTATIN SODIUM [Concomitant]
     Route: 048
  8. ALFAROL [Concomitant]
     Indication: OSTEOPOROSIS
     Dates: start: 19970109
  9. PROPRANOLOL HYDROCHLORIDE [Concomitant]
     Indication: HYPERTENSION
     Dates: start: 19920707

REACTIONS (1)
  - MYOSITIS [None]
